FAERS Safety Report 12381460 (Version 4)
Quarter: 2016Q3

REPORT INFORMATION
  Report Type: Report from Study
  Country: US (occurrence: US)
  Receive Date: 20160518
  Receipt Date: 20160810
  Transmission Date: 20161109
  Serious: Yes (Hospitalization, Other)
  Sender: FDA-Public Use
  Company Number: US-BAYER-2015-434873

PATIENT
  Age: 48 Year
  Sex: Female
  Weight: 92.97 kg

DRUGS (8)
  1. ADEMPAS [Suspect]
     Active Substance: RIOCIGUAT
     Indication: PULMONARY ARTERIAL HYPERTENSION
     Dosage: 2 MG, TID
     Route: 048
  2. ADEMPAS [Suspect]
     Active Substance: RIOCIGUAT
     Indication: PULMONARY ARTERIAL HYPERTENSION
     Dosage: 1 MG, TID
     Route: 048
  3. LETAIRIS [Concomitant]
     Active Substance: AMBRISENTAN
  4. ADEMPAS [Suspect]
     Active Substance: RIOCIGUAT
     Indication: PULMONARY ARTERIAL HYPERTENSION
     Dosage: 2.5 MG, TID
  5. ADEMPAS [Suspect]
     Active Substance: RIOCIGUAT
     Indication: PULMONARY ARTERIAL HYPERTENSION
     Dosage: 2.5 MG, TID
     Route: 048
  6. ADEMPAS [Suspect]
     Active Substance: RIOCIGUAT
     Indication: PULMONARY ARTERIAL HYPERTENSION
     Dosage: UNK
     Dates: start: 20150522
  7. ADEMPAS [Suspect]
     Active Substance: RIOCIGUAT
     Indication: PULMONARY ARTERIAL HYPERTENSION
     Dosage: 1.5 MG, TID
     Route: 048
  8. ADEMPAS [Suspect]
     Active Substance: RIOCIGUAT
     Indication: PULMONARY ARTERIAL HYPERTENSION
     Dosage: 2.5 MG, TID
     Route: 048

REACTIONS (19)
  - Pain in extremity [Unknown]
  - Feeling abnormal [Unknown]
  - Menstruation delayed [Unknown]
  - Drug dose omission [Unknown]
  - Blood potassium decreased [None]
  - Bone pain [None]
  - Menorrhagia [Unknown]
  - Pain in extremity [None]
  - Gallbladder disorder [Unknown]
  - Hospitalisation [Unknown]
  - Catheter management [Unknown]
  - Hypotension [Unknown]
  - Decreased appetite [None]
  - Therapy cessation [None]
  - Headache [None]
  - Blood pressure systolic decreased [Unknown]
  - Headache [Not Recovered/Not Resolved]
  - Back pain [Unknown]
  - Arthralgia [Unknown]
